FAERS Safety Report 10491131 (Version 1)
Quarter: 2014Q4

REPORT INFORMATION
  Report Type: Spontaneous
  Country: US (occurrence: US)
  Receive Date: 20141002
  Receipt Date: 20141002
  Transmission Date: 20150528
  Serious: No
  Sender: FDA-Public Use
  Company Number: US-GLAXOSMITHKLINE-A1047914A

PATIENT
  Sex: Male

DRUGS (8)
  1. ADVAIR HFA [Suspect]
     Active Substance: FLUTICASONE PROPIONATE\SALMETEROL XINAFOATE
     Indication: CHRONIC OBSTRUCTIVE PULMONARY DISEASE
     Dosage: 1PUFF TWICE PER DAY
     Route: 055
  2. CLOPIDOGREL [Concomitant]
     Active Substance: CLOPIDOGREL BISULFATE
  3. TAMSULOSIN [Concomitant]
     Active Substance: TAMSULOSIN
  4. ASPIRIN. [Concomitant]
     Active Substance: ASPIRIN
  5. SPIRIVA [Concomitant]
     Active Substance: TIOTROPIUM BROMIDE MONOHYDRATE
  6. VENTOLIN HFA [Concomitant]
     Active Substance: ALBUTEROL SULFATE
  7. LOVASTATIN. [Concomitant]
     Active Substance: LOVASTATIN
  8. LISINOPRIL. [Concomitant]
     Active Substance: LISINOPRIL

REACTIONS (4)
  - Cough [Unknown]
  - Drug ineffective [Unknown]
  - Lip swelling [Not Recovered/Not Resolved]
  - Drug administration error [Unknown]
